FAERS Safety Report 7027160-0 (Version None)
Quarter: 2010Q3

REPORT INFORMATION
  Report Type: 
  Country: None (occurrence: None)
  Receive Date: 20100930
  Receipt Date: 20100930
  Transmission Date: 20110219
  Serious: No
  Sender: FDA-Public Use
  Company Number: None

PATIENT
  Sex: Male
  Weight: 70.9 kg

DRUGS (2)
  1. CISPLATIN [Suspect]
     Dosage: 142.5 MG
     Dates: end: 20100809
  2. VINORELBINE TARTRATE [Suspect]
     Dosage: 114 MG
     Dates: end: 20100816

REACTIONS (1)
  - NEUTROPHIL COUNT DECREASED [None]
